FAERS Safety Report 10755137 (Version 1)
Quarter: 2015Q1

REPORT INFORMATION
  Report Type: Spontaneous
  Country: US (occurrence: None)
  Receive Date: 20150123
  Receipt Date: 20150123
  Transmission Date: 20150721
  Serious: Yes (Other)
  Sender: FDA-Public Use
  Company Number: TAP2009Q00074

PATIENT
  Age: 1 Year
  Sex: Female
  Weight: 9.09 kg

DRUGS (3)
  1. PREVACID SOLUTAB [Suspect]
     Active Substance: LANSOPRAZOLE
     Indication: GASTROOESOPHAGEAL REFLUX DISEASE
     Dosage: 1 TAB A.M. AND 1/2 TAB P.M.
     Route: 048
     Dates: start: 20090108
  2. ZONEGRAN (ZONISAMIDE) [Concomitant]
  3. VIGABATRIN (VIGABTRIN) [Concomitant]

REACTIONS (2)
  - Condition aggravated [None]
  - Infantile spasms [None]

NARRATIVE: CASE EVENT DATE: 200901
